FAERS Safety Report 16362016 (Version 17)
Quarter: 2020Q2

REPORT INFORMATION
  Report Type: Spontaneous
  Country: US (occurrence: US)
  Receive Date: 20190528
  Receipt Date: 20200401
  Transmission Date: 20200713
  Serious: Yes (Other)
  Sender: FDA-Public Use
  Company Number: US-PFIZER INC-2019225683

PATIENT
  Age: 62 Year
  Sex: Female

DRUGS (2)
  1. XELJANZ XR [Suspect]
     Active Substance: TOFACITINIB CITRATE
     Dosage: 11 MG, UNK
     Dates: start: 201902, end: 2019
  2. XELJANZ XR [Suspect]
     Active Substance: TOFACITINIB CITRATE
     Dosage: 11 MG, UNK
     Route: 048
     Dates: start: 201904, end: 20200227

REACTIONS (16)
  - Rheumatoid arthritis [Unknown]
  - Pain in extremity [Unknown]
  - Pruritus [Not Recovered/Not Resolved]
  - Discomfort [Unknown]
  - Insomnia [Unknown]
  - Arthralgia [Unknown]
  - Large intestinal haemorrhage [Unknown]
  - Cystitis [Unknown]
  - Fatigue [Unknown]
  - Pharyngitis streptococcal [Unknown]
  - Colitis microscopic [Unknown]
  - Viral infection [Unknown]
  - Gastrointestinal disorder [Unknown]
  - Pain [Unknown]
  - Malaise [Unknown]
  - Immune system disorder [Unknown]

NARRATIVE: CASE EVENT DATE: 2019
